FAERS Safety Report 7091694-3 (Version None)
Quarter: 2010Q4

REPORT INFORMATION
  Report Type: 
  Country: None (occurrence: None)
  Receive Date: 20101109
  Receipt Date: 20090805
  Transmission Date: 20110411
  Serious: No
  Sender: FDA-Public Use
  Company Number: US-KINGPHARMUSA00001-K200900932

PATIENT
  Sex: Male
  Weight: 95.692 kg

DRUGS (5)
  1. FLECTOR [Suspect]
     Indication: JOINT SPRAIN
     Dosage: 1 PATCH, BID
     Route: 061
     Dates: start: 20090731, end: 20090804
  2. ALBUTEROL [Concomitant]
     Indication: ASTHMA
     Dosage: UNK
  3. ALBUTEROL [Concomitant]
     Indication: CHRONIC OBSTRUCTIVE PULMONARY DISEASE
  4. SPIRIVA [Concomitant]
     Indication: ASTHMA
     Dosage: UNK
  5. SPIRIVA [Concomitant]
     Indication: CHRONIC OBSTRUCTIVE PULMONARY DISEASE

REACTIONS (3)
  - APPLICATION SITE DISCOLOURATION [None]
  - DYSPNOEA [None]
  - RESPIRATION ABNORMAL [None]
